FAERS Safety Report 7885350-9 (Version None)
Quarter: 2011Q4

REPORT INFORMATION
  Report Type: 
  Country: None (occurrence: None)
  Receive Date: 20111102
  Receipt Date: 20111031
  Transmission Date: 20120403
  Serious: Yes (Other)
  Sender: FDA-Public Use
  Company Number: US-ABBOTT-11P-163-0845348-00

PATIENT
  Sex: Female
  Weight: 53.572 kg

DRUGS (17)
  1. LISINOPRIL [Concomitant]
     Indication: BLOOD PRESSURE
     Dates: start: 19950101
  2. FEXOFENADINE [Concomitant]
     Indication: ALLERGIC SINUSITIS
  3. CALCIUM CARBONATE [Concomitant]
     Indication: PRODUCT USED FOR UNKNOWN INDICATION
  4. SPIRONOLACTONE [Concomitant]
     Indication: BLOOD PRESSURE
     Dates: start: 20000101
  5. FAMVIR [Concomitant]
     Indication: HERPES ZOSTER DISSEMINATED
     Dates: start: 19980101
  6. ESTER C BIOFLAVONOID [Concomitant]
     Indication: PRODUCT USED FOR UNKNOWN INDICATION
  7. FISH OIL [Concomitant]
     Indication: PROPHYLAXIS
  8. ARAVA [Concomitant]
     Indication: PRODUCT USED FOR UNKNOWN INDICATION
  9. HUMIRA [Suspect]
     Dosage: ADDITIONAL DOSE AS NEEDED
  10. FOSAMAX PLUS D [Concomitant]
     Indication: PRODUCT USED FOR UNKNOWN INDICATION
  11. MULTI-VITAMIN [Concomitant]
     Indication: PROPHYLAXIS
  12. FAMVIR [Concomitant]
     Indication: PROPHYLAXIS
  13. FEXOFENADINE [Concomitant]
     Indication: SINUS DISORDER
  14. HUMIRA [Suspect]
     Indication: PSORIATIC ARTHROPATHY
     Dates: start: 20080501
  15. WELLBUTRIN [Concomitant]
     Indication: PRODUCT USED FOR UNKNOWN INDICATION
  16. HUMIRA [Suspect]
  17. ASPIRIN [Concomitant]
     Indication: PROPHYLAXIS

REACTIONS (14)
  - MORTON'S NEUROMA [None]
  - PSORIATIC ARTHROPATHY [None]
  - IMPAIRED WORK ABILITY [None]
  - DRUG INEFFECTIVE [None]
  - PUSTULAR PSORIASIS [None]
  - PAIN [None]
  - POOR QUALITY SLEEP [None]
  - BENIGN BREAST NEOPLASM [None]
  - BASAL CELL CARCINOMA [None]
  - FATIGUE [None]
  - INCORRECT DRUG ADMINISTRATION DURATION [None]
  - MIDDLE INSOMNIA [None]
  - MELANOCYTIC NAEVUS [None]
  - PSORIASIS [None]
